FAERS Safety Report 10232627 (Version 1)
Quarter: 2014Q2

REPORT INFORMATION
  Report Type: Spontaneous
  Country: CN (occurrence: CN)
  Receive Date: 20140612
  Receipt Date: 20140612
  Transmission Date: 20141212
  Serious: Yes (Other)
  Sender: FDA-Public Use
  Company Number: CN-PFIZER INC-2014159296

PATIENT
  Age: 89 Year
  Sex: Male
  Weight: 55 kg

DRUGS (2)
  1. TAZOCIN [Suspect]
     Indication: INFECTION
     Dosage: 4.5 G, 3X/DAY
     Route: 041
     Dates: start: 20130605, end: 20130605
  2. SODIUM CHLORIDE [Concomitant]
     Dosage: 100 ML, 3X/DAY
     Route: 041
     Dates: start: 20130605, end: 20130605

REACTIONS (5)
  - Palpitations [Recovered/Resolved]
  - Blood pressure increased [Recovered/Resolved]
  - Tremor [Recovered/Resolved]
  - Chills [Recovered/Resolved]
  - Pyrexia [Recovered/Resolved]
